FAERS Safety Report 4906281-X (Version None)
Quarter: 2006Q1

REPORT INFORMATION
  Report Type: 
  Country: None (occurrence: None)
  Receive Date: 20060207
  Receipt Date: 20060127
  Transmission Date: 20060701
  Serious: Yes (Hospitalization)
  Sender: FDA-Public Use
  Company Number: 2006010603

PATIENT
  Age: 47 Year
  Sex: Male
  Weight: 101.4 kg

DRUGS (2)
  1. PREDNISOLONE [Suspect]
     Indication: ACUTE LYMPHOCYTIC LEUKAEMIA
     Dates: start: 20050113
  2. GLEEVEC [Suspect]
     Indication: ACUTE LYMPHOCYTIC LEUKAEMIA
     Dates: start: 20050113

REACTIONS (9)
  - BRONCHOPULMONARY ASPERGILLOSIS [None]
  - CHOLESTASIS [None]
  - DIABETES MELLITUS [None]
  - HAEMOCHROMATOSIS [None]
  - HAEMOPTYSIS [None]
  - HEPATIC STEATOSIS [None]
  - PERONEAL NERVE PALSY [None]
  - PLEURITIC PAIN [None]
  - PULMONARY CAVITATION [None]
